FAERS Safety Report 8003206-8 (Version None)
Quarter: 2011Q4

REPORT INFORMATION
  Report Type: 
  Country: None (occurrence: None)
  Receive Date: 20111222
  Receipt Date: 20111216
  Transmission Date: 20120403
  Serious: Yes (Other)
  Sender: FDA-Public Use
  Company Number: PHHY2011CA105238

PATIENT
  Sex: Male

DRUGS (1)
  1. GILENYA [Suspect]
     Indication: RELAPSING-REMITTING MULTIPLE SCLEROSIS
     Dosage: 0.5 MG, QD
     Route: 048
     Dates: start: 20111024

REACTIONS (5)
  - EXOPHTHALMOS [None]
  - DIZZINESS [None]
  - EYE PAIN [None]
  - LACRIMATION INCREASED [None]
  - OCULAR HYPERAEMIA [None]
